FAERS Safety Report 20336847 (Version 2)
Quarter: 2022Q1

REPORT INFORMATION
  Report Type: Report from Study
  Country: KR (occurrence: None)
  Receive Date: 20220114
  Receipt Date: 20220125
  Transmission Date: 20220424
  Serious: Yes (Hospitalization)
  Sender: FDA-Public Use
  Company Number: KR-Eisai Medical Research-EC-2022-106797

PATIENT
  Age: 72 Year
  Sex: Male
  Weight: 71 kg

DRUGS (13)
  1. LENVATINIB [Suspect]
     Active Substance: LENVATINIB
     Indication: Renal cell carcinoma
     Dosage: STARTING DOSE AT 20MG, FLUCTUATED DOSAGE
     Route: 048
     Dates: start: 20210105, end: 20211205
  2. LENVATINIB [Suspect]
     Active Substance: LENVATINIB
     Route: 048
     Dates: start: 20211206
  3. FAVEZELIMAB [Suspect]
     Active Substance: FAVEZELIMAB
     Indication: Renal cell carcinoma
     Dosage: 800 MG MK-4280 AND 200 MG MK-3475
     Route: 042
     Dates: start: 20210105, end: 20211206
  4. PEMBROLIZUMAB [Suspect]
     Active Substance: PEMBROLIZUMAB
     Dosage: 800 MG MK-4280 AND 200 MG MK-3475
     Route: 042
     Dates: start: 20211227, end: 20211227
  5. BENZYDAMINE HYDROCHLORIDE [Concomitant]
     Active Substance: BENZYDAMINE HYDROCHLORIDE
     Route: 061
     Dates: start: 20210119
  6. TRUSET [Concomitant]
     Dates: start: 20210126
  7. STEGLATRO [Concomitant]
     Active Substance: ERTUGLIFLOZIN PIDOLATE
     Dates: start: 20210629
  8. LEVOTHYROXINE SODIUM [Concomitant]
     Active Substance: LEVOTHYROXINE SODIUM
     Dates: start: 20211115
  9. METFORMIN HYDROCHLORIDE\VILDAGLIPTIN [Concomitant]
     Active Substance: METFORMIN HYDROCHLORIDE\VILDAGLIPTIN
     Dates: start: 20211226
  10. CARVEDILOL [Concomitant]
     Active Substance: CARVEDILOL
     Dates: start: 20210126
  11. MEGACE F [Concomitant]
     Dates: start: 20211227
  12. LACTICARE HC [Concomitant]
     Dates: start: 20211227
  13. PERIDEX [Concomitant]
     Active Substance: CHLORHEXIDINE GLUCONATE
     Dates: start: 20211227

REACTIONS (1)
  - Large intestine perforation [Recovered/Resolved]

NARRATIVE: CASE EVENT DATE: 20220111
